FAERS Safety Report 15425318 (Version 1)
Quarter: 2018Q3

REPORT INFORMATION
  Report Type: Spontaneous
  Country: US (occurrence: US)
  Receive Date: 20180925
  Receipt Date: 20180925
  Transmission Date: 20181010
  Serious: No
  Sender: FDA-Public Use
  Company Number: US-3M-2018-US-002022

PATIENT
  Age: 77 Year
  Sex: Male
  Weight: 83.92 kg

DRUGS (3)
  1. PERIDEX [Suspect]
     Active Substance: CHLORHEXIDINE GLUCONATE
     Indication: MOUTH ULCERATION
     Dosage: TWICE DAILY SWISH AND SPIT
     Route: 048
     Dates: start: 20170915, end: 20170929
  2. ENALAPRIL [Concomitant]
     Active Substance: ENALAPRIL
     Indication: HYPERTENSION
     Dosage: 10MG
  3. TAMSULOSIN [Concomitant]
     Active Substance: TAMSULOSIN
     Indication: PROSTATOMEGALY

REACTIONS (6)
  - Cytomegalovirus test positive [Unknown]
  - Dysgeusia [Recovered/Resolved]
  - Stomatitis [Not Recovered/Not Resolved]
  - Sluggishness [Recovered/Resolved]
  - Gingival ulceration [Not Recovered/Not Resolved]
  - Aphthous ulcer [Not Recovered/Not Resolved]

NARRATIVE: CASE EVENT DATE: 20170915
